FAERS Safety Report 5339390-4 (Version None)
Quarter: 2007Q2

REPORT INFORMATION
  Report Type: 
  Country: None (occurrence: None)
  Receive Date: 20070322
  Receipt Date: 20061127
  Transmission Date: 20071010
  Serious: Yes (Hospitalization)
  Sender: FDA-Public Use
  Company Number: 200614245BCC

PATIENT
  Age: 68 Year
  Sex: Female
  Weight: 52.1637 kg

DRUGS (2)
  1. ALEVE [Suspect]
     Indication: DRUG USE FOR UNKNOWN INDICATION
     Dosage: NI, IRR, ORAL
     Route: 048
     Dates: start: 20060101
  2. MEDICINE TO LOWER BLOOD PRESSURE [Concomitant]

REACTIONS (4)
  - ABDOMINAL PAIN [None]
  - FAECES DISCOLOURED [None]
  - ULCER HAEMORRHAGE [None]
  - VOMITING [None]
